FAERS Safety Report 10360553 (Version 1)
Quarter: 2014Q3

REPORT INFORMATION
  Report Type: Spontaneous
  Country: GB (occurrence: None)
  Receive Date: 20140730
  Receipt Date: 20140730
  Transmission Date: 20150326
  Serious: Yes (Other)
  Sender: FDA-Public Use
  Company Number: 2014COR00034

PATIENT
  Age: 44 Year
  Sex: Female

DRUGS (10)
  1. LEVOTHROXINE [Concomitant]
  2. LANSOORAZOLE [Concomitant]
  3. CODEINE PHOSPHATE (CODEINE PHOSPHATE) [Suspect]
     Active Substance: CODEINE PHOSPHATE
     Indication: PAIN
     Dosage: 60 MG, 3X/DAY
  4. SODIUM DOCUSATE (SODIUM DOCUSATE) [Concomitant]
  5. OXYCODONE [Suspect]
     Active Substance: OXYCODONE
     Indication: PAIN
     Dosage: 55 MG, 2X/DAY
  6. LEVETIRACETAM. [Concomitant]
     Active Substance: LEVETIRACETAM
  7. METOCLOPRAMIDE. [Concomitant]
     Active Substance: METOCLOPRAMIDE
  8. PARACETAMOL [Concomitant]
     Active Substance: ACETAMINOPHEN
  9. CARBAMAZEPINE. [Concomitant]
     Active Substance: CARBAMAZEPINE
  10. MOVICOL (MACROGOL) [Concomitant]

REACTIONS (9)
  - Hyperaesthesia [None]
  - Memory impairment [None]
  - Hallucinations, mixed [None]
  - Pain [None]
  - Muscular weakness [None]
  - Muscle spasms [None]
  - Allodynia [None]
  - Fall [None]
  - Jaw disorder [None]
